FAERS Safety Report 9746535 (Version 2)
Quarter: 2014Q1

REPORT INFORMATION
  Report Type: Spontaneous
  Country: US (occurrence: None)
  Receive Date: 20131205
  Receipt Date: 20140220
  Transmission Date: 20141002
  Serious: Yes (Hospitalization, Other)
  Sender: FDA-Public Use
  Company Number: AUR-APL-2013-09922

PATIENT
  Age: 44 Year
  Sex: Male
  Weight: 74.84 kg

DRUGS (17)
  1. NEURONTIN (GABAPENTIN) [Concomitant]
  2. NASONEX (MOMETASONE FUROATE) [Concomitant]
  3. LANTUS (INSULIN GLARGINE) [Concomitant]
  4. HUMALOG (INSULIN LISPRO) [Concomitant]
  5. ALBUTEROL SALBUTAMOL) [Concomitant]
  6. SPIRIVA (TIOTROPIUM BROMIDE) (TIOTROPIUM BROMIDE) [Concomitant]
  7. DESYREL (TRAZODONE HYDROCHLORIDE) [Concomitant]
  8. ATENOLOL (ATENOLOL) [Suspect]
     Indication: HYPERTENSION
     Route: 048
     Dates: start: 2005
  9. ATENOLOL (ATENOLOL) [Suspect]
     Indication: HEART RATE ABNORMAL
     Route: 048
     Dates: start: 2005
  10. LISINOPRIL (LISINOPRIL) [Suspect]
     Indication: HYPERTENSION
     Route: 048
     Dates: start: 2003
  11. NEXIUM (ESOMEPRAZOLE MAGNESIUM) [Suspect]
     Indication: COLITIS
     Route: 048
     Dates: start: 2003, end: 20131031
  12. NEXIUM (ESOMEPRAZOLE MAGNESIUM) [Suspect]
     Indication: GASTRIC ULCER
     Route: 048
     Dates: start: 2003, end: 20131031
  13. ELAVIL (AMITRIPTYLINE HYDROCHLORIDE) [Suspect]
     Indication: BIPOLAR I DISORDER
     Route: 048
     Dates: start: 1985
  14. ADVAIR DISKUS [Concomitant]
  15. LIPITOR (ATORVASTATIN CALCIUM) [Concomitant]
  16. FLOMAX ^CSL^ (MORNIFLUMATE) [Concomitant]
  17. BENTYL (DICYCLOVERINE HYDROCHLORIDE) [Concomitant]

REACTIONS (18)
  - Oesophageal ulcer [None]
  - Mouth haemorrhage [None]
  - Rectal haemorrhage [None]
  - Diabetic retinopathy [None]
  - Cataract [None]
  - Blood glucose increased [None]
  - Nerve injury [None]
  - Visual impairment [None]
  - Perforated ulcer [None]
  - Enterocolitis [None]
  - Gastric ulcer [None]
  - Amnesia [None]
  - Neck pain [None]
  - Tachycardia [None]
  - Off label use [None]
  - Type 1 diabetes mellitus [None]
  - Hypertension [None]
  - Oesophageal ulcer [None]
